FAERS Safety Report 23434564 (Version 1)
Quarter: 2024Q1

REPORT INFORMATION
  Report Type: Spontaneous
  Country: US (occurrence: US)
  Receive Date: 20240123
  Receipt Date: 20240123
  Transmission Date: 20240410
  Serious: Yes (Other)
  Sender: FDA-Public Use
  Company Number: US-NOVOPROD-1127099

PATIENT
  Age: 18 Year
  Sex: Male

DRUGS (2)
  1. WEGOVY [Suspect]
     Active Substance: SEMAGLUTIDE
     Dosage: 0.5 MG WEEKLY
     Route: 058
     Dates: start: 202306
  2. WEGOVY [Suspect]
     Active Substance: SEMAGLUTIDE
     Indication: Weight decreased
     Dosage: 0.25 MG QW
     Route: 058
     Dates: start: 202305, end: 202306

REACTIONS (1)
  - Impaired gastric emptying [Not Recovered/Not Resolved]

NARRATIVE: CASE EVENT DATE: 20230101
